FAERS Safety Report 23917412 (Version 1)
Quarter: 2024Q2

REPORT INFORMATION
  Report Type: Spontaneous
  Country: US (occurrence: US)
  Receive Date: 20240529
  Receipt Date: 20240529
  Transmission Date: 20240716
  Serious: No
  Sender: FDA-Public Use
  Company Number: US-BIOGEN-2024BI01266348

PATIENT
  Age: 29 Year
  Sex: Female

DRUGS (2)
  1. ZURZUVAE [Suspect]
     Active Substance: ZURANOLONE
     Indication: Product used for unknown indication
     Route: 050
     Dates: start: 20240513
  2. ZURZUVAE [Suspect]
     Active Substance: ZURANOLONE
     Dosage: REDUCED DOSE
     Route: 050

REACTIONS (4)
  - Somnolence [Unknown]
  - Sedation [Unknown]
  - Lethargy [Unknown]
  - Tremor [Unknown]
